FAERS Safety Report 14952976 (Version 1)
Quarter: 2018Q2

REPORT INFORMATION
  Report Type: Spontaneous
  Country: US (occurrence: US)
  Receive Date: 20180530
  Receipt Date: 20180530
  Transmission Date: 20180711
  Serious: No
  Sender: FDA-Public Use
  Company Number: US-TAKEDA-2018TUS017893

PATIENT
  Sex: Female
  Weight: 44.44 kg

DRUGS (1)
  1. ROZEREM [Suspect]
     Active Substance: RAMELTEON
     Indication: INSOMNIA
     Dosage: 8 MG, QD
     Route: 048
     Dates: start: 20180222, end: 20180225

REACTIONS (2)
  - Pruritus generalised [Recovered/Resolved]
  - Drug ineffective [Unknown]
